FAERS Safety Report 8133813-3 (Version None)
Quarter: 2012Q1

REPORT INFORMATION
  Report Type: 
  Country: None (occurrence: None)
  Receive Date: 20120213
  Receipt Date: 20120213
  Transmission Date: 20120608
  Serious: Yes (Other)
  Sender: FDA-Public Use
  Company Number: None

PATIENT
  Age: 61 Year
  Sex: Male
  Weight: 113.39 kg

DRUGS (2)
  1. SULFAMETHOXAZOLE AND TRIMETHOPRIM [Suspect]
     Indication: SKIN LESION
     Dosage: 2 TABLETS
     Route: 048
     Dates: start: 20120125, end: 20120207
  2. SULFAMETHOXAZOLE AND TRIMETHOPRIM [Suspect]
     Indication: POSTOPERATIVE CARE
     Dosage: 2 TABLETS
     Route: 048
     Dates: start: 20120125, end: 20120207

REACTIONS (8)
  - ABDOMINAL PAIN UPPER [None]
  - BURNING SENSATION [None]
  - CHROMATURIA [None]
  - ASTHENIA [None]
  - GASTROOESOPHAGEAL REFLUX DISEASE [None]
  - DYSGEUSIA [None]
  - DECREASED APPETITE [None]
  - MUSCLE DISORDER [None]
